FAERS Safety Report 20795970 (Version 1)
Quarter: 2022Q2

REPORT INFORMATION
  Report Type: Spontaneous
  Country: CA (occurrence: CA)
  Receive Date: 20220506
  Receipt Date: 20220506
  Transmission Date: 20220721
  Serious: Yes (Other)
  Sender: FDA-Public Use
  Company Number: CA-MYLANLABS-2022M1032837

PATIENT
  Age: 60 Year
  Sex: Male

DRUGS (10)
  1. MIRTAZAPINE [Suspect]
     Active Substance: MIRTAZAPINE
     Indication: Neuropathic pruritus
     Dosage: 15 MILLIGRAM
     Route: 065
  2. MENTHOL [Suspect]
     Active Substance: MENTHOL
     Indication: Neuropathic pruritus
     Dosage: UNK
     Route: 061
  3. CAMPHOR [Suspect]
     Active Substance: CAMPHOR
     Indication: Neuropathic pruritus
     Dosage: UNK
     Route: 061
  4. CAPSAICIN [Suspect]
     Active Substance: CAPSAICIN
     Indication: Neuropathic pruritus
     Dosage: UNK
     Route: 061
  5. HYDROXYZINE [Suspect]
     Active Substance: HYDROXYZINE HYDROCHLORIDE
     Indication: Neuropathic pruritus
     Dosage: 25 MILLIGRAM, TID THREE TIMES A DAY
     Route: 065
  6. PREGABALIN [Suspect]
     Active Substance: PREGABALIN
     Indication: Neuropathic pruritus
     Dosage: 50 MILLIGRAM, BID
     Route: 065
  7. VENLAFAXINE [Suspect]
     Active Substance: VENLAFAXINE HYDROCHLORIDE
     Indication: Neuropathic pruritus
     Dosage: 150 MILLIGRAM, QD
     Route: 065
  8. NORTRIPTYLINE [Suspect]
     Active Substance: NORTRIPTYLINE
     Indication: Neuropathic pruritus
     Dosage: 10 MILLIGRAM
     Route: 065
  9. NABIXIMOLS [Suspect]
     Active Substance: NABIXIMOLS
     Indication: Neuropathic pruritus
     Dosage: 2.43MG THC/CBD 2.75MG
     Route: 048
  10. NABIXIMOLS [Suspect]
     Active Substance: NABIXIMOLS
     Dosage: THE DOSE WAS INCREASED TO ONE CAPSULE TWICE DAILY
     Route: 048

REACTIONS (4)
  - Anticholinergic syndrome [Unknown]
  - Drug ineffective [Unknown]
  - Sedation [Unknown]
  - Off label use [Unknown]
